FAERS Safety Report 11142659 (Version 1)
Quarter: 2015Q2

REPORT INFORMATION
  Report Type: Spontaneous
  Country: US (occurrence: US)
  Receive Date: 20150527
  Receipt Date: 20150527
  Transmission Date: 20150821
  Serious: No
  Sender: FDA-Public Use
  Company Number: US-GLAXOSMITHKLINE-US2015GSK071021

PATIENT
  Age: 56 Year
  Sex: Female

DRUGS (1)
  1. ALLI [Suspect]
     Active Substance: ORLISTAT
     Indication: PRODUCT USED FOR UNKNOWN INDICATION
     Dosage: 1-2 CAPSULE PER MEAL
     Route: 048

REACTIONS (8)
  - Abnormal faeces [Unknown]
  - Back pain [Unknown]
  - Drug ineffective [Unknown]
  - Constipation [Unknown]
  - Abdominal distension [Unknown]
  - Malaise [Unknown]
  - Muscle spasms [Unknown]
  - Product quality issue [Unknown]
